FAERS Safety Report 17037931 (Version 1)
Quarter: 2019Q4

REPORT INFORMATION
  Report Type: Other
  Country: US (occurrence: US)
  Receive Date: 20191115
  Receipt Date: 20191115
  Transmission Date: 20200122
  Serious: Yes (Hospitalization)
  Sender: FDA-Public Use
  Company Number: US-ALSI-201900466

PATIENT
  Age: 40 Year
  Sex: Female

DRUGS (2)
  1. OZONE [Suspect]
     Active Substance: OZONE
     Route: 042
  2. OXYGEN. [Suspect]
     Active Substance: OXYGEN
     Indication: GENITAL HERPES
     Route: 042

REACTIONS (2)
  - Encephalopathy [Recovered/Resolved]
  - Off label use [Recovered/Resolved]
